FAERS Safety Report 25906982 (Version 1)
Quarter: 2025Q4

REPORT INFORMATION
  Report Type: Spontaneous
  Country: US (occurrence: US)
  Receive Date: 20251010
  Receipt Date: 20251010
  Transmission Date: 20260118
  Serious: No
  Sender: HARMONY BIOSCIENCES
  Company Number: US-HARMONY BIOSCIENCES-2024HMY02202

PATIENT

DRUGS (13)
  1. WAKIX [Suspect]
     Active Substance: PITOLISANT HYDROCHLORIDE
     Indication: Narcolepsy
     Dosage: 35.6 MG, 1X/DAY, EVERY MORINING
     Route: 048
     Dates: start: 202409, end: 2024
  2. WAKIX [Suspect]
     Active Substance: PITOLISANT HYDROCHLORIDE
     Indication: Cataplexy
     Dosage: 35.6 MG, 1X/DAY, EVERY MORINING
     Route: 048
     Dates: start: 2024, end: 2024
  3. EFFEXOR [Suspect]
     Active Substance: VENLAFAXINE HYDROCHLORIDE
     Dosage: UNK; BEING WEANED DOWN
     Route: 065
  4. XYREM [Concomitant]
     Active Substance: SODIUM OXYBATE
  5. MOXATAG [Concomitant]
     Active Substance: AMOXICILLIN
  6. LOSARTAN POTASSIUM [Concomitant]
     Active Substance: LOSARTAN POTASSIUM
  7. VITAMIN C [Concomitant]
     Active Substance: ASCORBIC ACID
  8. WEGOVY [Concomitant]
     Active Substance: SEMAGLUTIDE
  9. ATORVASTATIN CALCIUM [Concomitant]
     Active Substance: ATORVASTATIN CALCIUM
  10. DEXTROAMPHETAMINE SULFATE [Concomitant]
     Active Substance: DEXTROAMPHETAMINE SULFATE
  11. NIFEDIPINE [Concomitant]
     Active Substance: NIFEDIPINE
  12. HYDROCHLOROTHIAZIDE [Concomitant]
     Active Substance: HYDROCHLOROTHIAZIDE
  13. MULTIVITAMIN [ASCORBIC ACID;NICOTINAMIDE;RETINOL;RIBOFLAVIN;THIAMINE;V [Concomitant]

REACTIONS (5)
  - Somnolence [Not Recovered/Not Resolved]
  - Disturbance in attention [Not Recovered/Not Resolved]
  - Dyspnoea [Unknown]
  - Presyncope [Unknown]
  - Dizziness [Not Recovered/Not Resolved]

NARRATIVE: CASE EVENT DATE: 20240101
